FAERS Safety Report 9815528 (Version 1)
Quarter: 2014Q1

REPORT INFORMATION
  Report Type: Spontaneous
  Country: US (occurrence: US)
  Receive Date: 20140114
  Receipt Date: 20140114
  Transmission Date: 20141002
  Serious: Yes (Life-Threatening, Hospitalization, Other)
  Sender: FDA-Public Use
  Company Number: US-ELI_LILLY_AND_COMPANY-US201401002049

PATIENT
  Age: 69 Year
  Sex: Female

DRUGS (8)
  1. HUMALOG LISPRO [Suspect]
     Indication: TYPE 2 DIABETES MELLITUS
     Dosage: UNK, PRN
     Route: 065
     Dates: start: 1999
  2. LANTUS [Concomitant]
     Dosage: UNK, QD
  3. ADDERALL [Concomitant]
     Dosage: 20 MG, QD
  4. ANAFRANIL [Concomitant]
     Dosage: 25 MG, QD
  5. ASPIRIN [Concomitant]
     Dosage: 325 MG, QD
  6. LISINOPRIL [Concomitant]
     Dosage: 20 MG, QD
  7. METOPROLOL SUCCINATE [Concomitant]
     Dosage: 50 MG, QD
  8. SIMVASTATIN [Concomitant]
     Dosage: 40 MG, QD

REACTIONS (4)
  - Myocardial infarction [Unknown]
  - Carotid artery occlusion [Unknown]
  - Peripheral vascular disorder [Unknown]
  - Thyroid mass [Unknown]
